FAERS Safety Report 5941275-7 (Version None)
Quarter: 2008Q4

REPORT INFORMATION
  Report Type: 
  Country: None (occurrence: None)
  Receive Date: 20081103
  Receipt Date: 20081103
  Transmission Date: 20090506
  Serious: Yes (Hospitalization)
  Sender: FDA-Public Use
  Company Number: None

PATIENT
  Sex: Female
  Weight: 81.3 kg

DRUGS (2)
  1. RAPAMYCIN [Suspect]
     Indication: COLON CANCER
     Dosage: 35MG WEEKLY PO
     Route: 048
     Dates: start: 20080917, end: 20081029
  2. GRAPEFRUIT JUICE [Suspect]
     Indication: COLON CANCER
     Dosage: 8 OZ DAILY PO
     Route: 048
     Dates: start: 20080923, end: 20081030

REACTIONS (2)
  - ABDOMINAL PAIN [None]
  - INTRA-ABDOMINAL HAEMATOMA [None]
